FAERS Safety Report 9565898 (Version 2)
Quarter: 2017Q2

REPORT INFORMATION
  Report Type: Spontaneous
  Country: CA (occurrence: CA)
  Receive Date: 20130930
  Receipt Date: 20170609
  Transmission Date: 20170830
  Serious: Yes (Hospitalization, Other)
  Sender: FDA-Public Use
  Company Number: CA-MERCK-1309CAN013904

PATIENT
  Age: 56 Year
  Sex: Female
  Weight: 83.9 kg

DRUGS (3)
  1. SAPHRIS [Suspect]
     Active Substance: ASENAPINE MALEATE
     Indication: DISSOCIATIVE IDENTITY DISORDER
     Dosage: 5 MG, BID
     Route: 060
     Dates: start: 20120301, end: 20120507
  2. SAPHRIS [Suspect]
     Active Substance: ASENAPINE MALEATE
     Indication: SCHIZOPHRENIA
  3. CIPRALEX [Concomitant]
     Active Substance: ESCITALOPRAM OXALATE
     Indication: PRODUCT USED FOR UNKNOWN INDICATION
     Dosage: 40 MG, ONCE DAILY
     Route: 065

REACTIONS (5)
  - Malaise [Recovered/Resolved]
  - Blood glucose increased [Recovered/Resolved]
  - Confusional state [Recovered/Resolved]
  - Diabetes mellitus [Recovered/Resolved]
  - Unresponsive to stimuli [Recovered/Resolved]

NARRATIVE: CASE EVENT DATE: 201205
